FAERS Safety Report 14929352 (Version 3)
Quarter: 2018Q3

REPORT INFORMATION
  Report Type: Spontaneous
  Country: FR (occurrence: FR)
  Receive Date: 20180523
  Receipt Date: 20180709
  Transmission Date: 20181010
  Serious: Yes (Hospitalization)
  Sender: FDA-Public Use
  Company Number: FR-JNJFOC-20180529241

PATIENT
  Age: 57 Year
  Sex: Female

DRUGS (7)
  1. TAHOR [Concomitant]
     Active Substance: ATORVASTATIN CALCIUM
     Route: 065
  2. XARELTO [Suspect]
     Active Substance: RIVAROXABAN
     Indication: PRODUCT USED FOR UNKNOWN INDICATION
     Route: 048
     Dates: start: 201805
  3. SITAGLIPTIN [Concomitant]
     Active Substance: SITAGLIPTIN
     Route: 065
  4. LITHIUM CARBONATE. [Concomitant]
     Active Substance: LITHIUM CARBONATE
     Indication: BIPOLAR DISORDER
     Route: 065
  5. ASPIRINE [Concomitant]
     Active Substance: ASPIRIN
     Route: 065
  6. METFORMINE [Concomitant]
     Active Substance: METFORMIN HYDROCHLORIDE
     Route: 065
  7. IRBESARTAN. [Concomitant]
     Active Substance: IRBESARTAN
     Route: 065

REACTIONS (8)
  - Memory impairment [Unknown]
  - Mental disorder [Unknown]
  - Gait inability [Unknown]
  - Feeding disorder [Unknown]
  - Antipsychotic drug level increased [Unknown]
  - Speech disorder [Unknown]
  - Disorientation [Unknown]
  - Antidepressant drug level increased [Unknown]

NARRATIVE: CASE EVENT DATE: 201805
